FAERS Safety Report 16189781 (Version 1)
Quarter: 2019Q2

REPORT INFORMATION
  Report Type: Spontaneous
  Country: US (occurrence: US)
  Receive Date: 20190412
  Receipt Date: 20190412
  Transmission Date: 20190711
  Serious: Yes (Death, Other)
  Sender: FDA-Public Use
  Company Number: US-ROCHE-2174612

PATIENT
  Sex: Female

DRUGS (3)
  1. AMOBARBITAL [Concomitant]
     Active Substance: AMOBARBITAL
  2. VALIUM [Suspect]
     Active Substance: DIAZEPAM
     Indication: PRODUCT USED FOR UNKNOWN INDICATION
     Route: 065
  3. SECOBARBITAL [Concomitant]
     Active Substance: SECOBARBITAL

REACTIONS (3)
  - Fall [Unknown]
  - Death [Fatal]
  - Overdose [Unknown]
